FAERS Safety Report 7349893-9 (Version None)
Quarter: 2011Q1

REPORT INFORMATION
  Report Type: 
  Country: None (occurrence: None)
  Receive Date: 20110314
  Receipt Date: 20110304
  Transmission Date: 20110831
  Serious: Yes (Hospitalization, Other)
  Sender: FDA-Public Use
  Company Number: CA-GENZYME-POMP-1001330

PATIENT

DRUGS (1)
  1. MYOZYME [Suspect]
     Indication: GLYCOGEN STORAGE DISEASE TYPE II
     Dosage: UNK MG/KG, Q2W
     Route: 042
     Dates: start: 20101101

REACTIONS (3)
  - PYREXIA [None]
  - DISEASE PROGRESSION [None]
  - RESPIRATORY DISTRESS [None]
